FAERS Safety Report 17510705 (Version 1)
Quarter: 2020Q1

REPORT INFORMATION
  Report Type: Spontaneous
  Country: US (occurrence: US)
  Receive Date: 20200226
  Receipt Date: 20200226
  Transmission Date: 20200409
  Serious: Yes (Hospitalization)
  Sender: FDA-Public Use
  Company Number: None

PATIENT
  Age: 83 Year
  Sex: Female

DRUGS (1)
  1. POMALYST [Suspect]
     Active Substance: POMALIDOMIDE
     Indication: PLASMA CELL MYELOMA
     Dosage: 2MG DAILY X 21D /28D ORAL
     Route: 048
     Dates: start: 20190312, end: 20191118

REACTIONS (1)
  - Embolic stroke [None]

NARRATIVE: CASE EVENT DATE: 20191118
